FAERS Safety Report 6177609-0 (Version None)
Quarter: 2009Q2

REPORT INFORMATION
  Report Type: 
  Country: None (occurrence: None)
  Receive Date: 20090504
  Receipt Date: 20090429
  Transmission Date: 20091009
  Serious: Yes (Hospitalization, Other)
  Sender: FDA-Public Use
  Company Number: NL-ROXANE LABORATORIES, INC.-2009-RO-00419RO

PATIENT
  Age: 57 Year
  Sex: Male
  Weight: 115 kg

DRUGS (9)
  1. CITALOPRAM HYDROBROMIDE [Suspect]
     Indication: BIPOLAR DISORDER
  2. LITHIUM CARBONATE [Suspect]
     Indication: BIPOLAR DISORDER
     Dosage: 1500MG
  3. CARBAMAZEPINE [Suspect]
     Indication: BIPOLAR DISORDER
  4. VALPROIC ACID [Suspect]
     Indication: BIPOLAR DISORDER
     Dosage: 1350MG
  5. INSULIN [Suspect]
     Indication: INSULIN-REQUIRING TYPE 2 DIABETES MELLITUS
  6. ANTIDIABETICS [Suspect]
     Indication: INSULIN-REQUIRING TYPE 2 DIABETES MELLITUS
     Route: 048
  7. SILDENAFIL CITRATE [Concomitant]
     Indication: ERECTILE DYSFUNCTION
  8. TESTOSTERONE [Concomitant]
     Indication: HYPOGONADISM
  9. TESTOSTERONE [Concomitant]
     Indication: ERECTILE DYSFUNCTION

REACTIONS (6)
  - APATHY [None]
  - DRUG INEFFECTIVE [None]
  - HYPOGONADISM [None]
  - INSULIN-REQUIRING TYPE 2 DIABETES MELLITUS [None]
  - NEUROPATHY PERIPHERAL [None]
  - OBESITY [None]
